FAERS Safety Report 7236221-2 (Version None)
Quarter: 2011Q1

REPORT INFORMATION
  Report Type: 
  Country: None (occurrence: None)
  Receive Date: 20110120
  Receipt Date: 20110108
  Transmission Date: 20110831
  Serious: Yes (Other)
  Sender: FDA-Public Use
  Company Number: US-WATSON-2011-00204

PATIENT
  Sex: Female
  Weight: 72.562 kg

DRUGS (1)
  1. LEVONORGESTREL [Suspect]
     Indication: POST COITAL CONTRACEPTION
     Dosage: 1ST TABLET TAKEN MORE THAN 72 HRS AFTER UNPROTECTED SEX AND 2ND TABLET 12 HRS LATER
     Route: 048
     Dates: start: 20110104, end: 20110105

REACTIONS (6)
  - VAGINAL DISCHARGE [None]
  - INAPPROPRIATE SCHEDULE OF DRUG ADMINISTRATION [None]
  - ABORTION SPONTANEOUS [None]
  - ABDOMINAL PAIN LOWER [None]
  - DRUG INEFFECTIVE [None]
  - VULVOVAGINAL DISCOMFORT [None]
